FAERS Safety Report 11215083 (Version 1)
Quarter: 2015Q2

REPORT INFORMATION
  Report Type: Spontaneous
  Country: JP (occurrence: JP)
  Receive Date: 20150624
  Receipt Date: 20150624
  Transmission Date: 20150821
  Serious: Yes (Other)
  Sender: FDA-Public Use
  Company Number: JP-SUN PHARMACEUTICAL INDUSTRIES LTD-2015RR-99191

PATIENT

DRUGS (13)
  1. MAOBUSHISAISHINTO [Concomitant]
     Active Substance: HERBALS
     Indication: HEADACHE
     Route: 065
  2. CARBOCYSTEINE [Concomitant]
     Active Substance: CARBOCYSTEINE
     Indication: PYREXIA
     Route: 065
  3. PARACETAMOL [Suspect]
     Active Substance: ACETAMINOPHEN
     Indication: PYREXIA
     Route: 065
  4. CARBOCYSTEINE [Concomitant]
     Active Substance: CARBOCYSTEINE
     Indication: ABDOMINAL PAIN
  5. TRANEXAMIC ACID. [Concomitant]
     Active Substance: TRANEXAMIC ACID
     Indication: PYREXIA
     Route: 065
  6. LYSOZYME HYDROCHLORIDE [Concomitant]
     Active Substance: LYSOZYME HYDROCHLORIDE
     Indication: HEADACHE
     Route: 065
  7. TRANEXAMIC ACID. [Concomitant]
     Active Substance: TRANEXAMIC ACID
     Indication: ABDOMINAL PAIN
  8. IBUPROFEN. [Concomitant]
     Active Substance: IBUPROFEN
     Indication: ABDOMINAL PAIN
  9. CEFCAPENE PIVOXIL HYDROCHLORIDE [Concomitant]
     Active Substance: CEFCAPENE PIVOXIL HYDROCHLORIDE
     Indication: HEADACHE
     Route: 065
  10. CLARITHROMYCIN. [Concomitant]
     Active Substance: CLARITHROMYCIN
     Indication: PYREXIA
     Route: 065
  11. CLARITHROMYCIN. [Concomitant]
     Active Substance: CLARITHROMYCIN
     Indication: ABDOMINAL PAIN
  12. IBUPROFEN. [Concomitant]
     Active Substance: IBUPROFEN
     Indication: PYREXIA
     Route: 065
  13. PARACETAMOL [Suspect]
     Active Substance: ACETAMINOPHEN
     Indication: ABDOMINAL PAIN

REACTIONS (6)
  - Hyponatraemia [Unknown]
  - Pericardial effusion [Recovering/Resolving]
  - Drug-induced liver injury [Recovered/Resolved]
  - Ascites [Unknown]
  - Pleural effusion [Recovering/Resolving]
  - Procalcitonin increased [Unknown]
